FAERS Safety Report 15106673 (Version 4)
Quarter: 2020Q1

REPORT INFORMATION
  Report Type: Spontaneous
  Country: US (occurrence: US)
  Receive Date: 20180704
  Receipt Date: 20200316
  Transmission Date: 20200409
  Serious: Yes (Other)
  Sender: FDA-Public Use
  Company Number: US-SA-2018SA172582

PATIENT
  Age: 48 Year
  Sex: Female
  Weight: 56.69 kg

DRUGS (10)
  1. FOLBIC [Concomitant]
     Active Substance: CYANOCOBALAMIN\FOLIC ACID\PYRIDOXINE
  2. SYNTHROID [Concomitant]
     Active Substance: LEVOTHYROXINE SODIUM
  3. FLUTICASONE. [Concomitant]
     Active Substance: FLUTICASONE
  4. AUBAGIO [Suspect]
     Active Substance: TERIFLUNOMIDE
     Indication: MULTIPLE SCLEROSIS
     Dosage: 14 MG, QD
     Route: 048
     Dates: start: 201805, end: 201911
  5. ASPIRIN (E.C.) [Concomitant]
     Active Substance: ASPIRIN
  6. VITAMIN D3 [Concomitant]
     Active Substance: CHOLECALCIFEROL
  7. VITAMIN C ACID [Concomitant]
     Active Substance: ASCORBIC ACID
  8. CLARITIN [CLARITHROMYCIN] [Concomitant]
     Active Substance: CLARITHROMYCIN
  9. VITAMIN B12 [Concomitant]
     Active Substance: CYANOCOBALAMIN
  10. FLONASE [Concomitant]
     Active Substance: FLUTICASONE PROPIONATE

REACTIONS (14)
  - Malaise [Recovering/Resolving]
  - Back pain [Unknown]
  - Formication [Unknown]
  - Depression [Recovering/Resolving]
  - Abdominal discomfort [Unknown]
  - Decreased interest [Recovering/Resolving]
  - Sleep disorder [Unknown]
  - Fatigue [Unknown]
  - Diarrhoea [Unknown]
  - Multiple sclerosis [Unknown]
  - Vertigo [Recovering/Resolving]
  - Balance disorder [Recovering/Resolving]
  - Depressed mood [Recovering/Resolving]
  - Paraesthesia [Unknown]

NARRATIVE: CASE EVENT DATE: 201805
